FAERS Safety Report 5711650-4 (Version None)
Quarter: 2008Q2

REPORT INFORMATION
  Report Type: 
  Country: None (occurrence: None)
  Receive Date: 20080421
  Receipt Date: 20080328
  Transmission Date: 20081010
  Serious: Yes (Hospitalization, Other)
  Sender: FDA-Public Use
  Company Number: JP-PFIZER INC-2005087942

PATIENT
  Sex: Male
  Weight: 49 kg

DRUGS (18)
  1. CAMPTO [Suspect]
     Indication: GASTRIC CANCER
     Route: 042
     Dates: start: 20050516, end: 20050530
  2. CAMPTO [Suspect]
     Route: 042
     Dates: start: 20050620, end: 20050704
  3. TEGAFUR/GIMERACIL/OTERACIL POTASSIUM [Suspect]
     Indication: GASTRIC CANCER
     Route: 048
     Dates: start: 20050516, end: 20050604
  4. TEGAFUR/GIMERACIL/OTERACIL POTASSIUM [Suspect]
     Route: 048
     Dates: start: 20050620, end: 20050710
  5. TELEMINSOFT [Suspect]
     Indication: CONSTIPATION
     Dosage: DAILY DOSE:10MG
     Route: 054
     Dates: start: 20050530, end: 20050602
  6. DIGOXIN [Concomitant]
     Indication: CONGESTIVE CARDIOMYOPATHY
     Dosage: DAILY DOSE:.125MG
     Route: 048
  7. LASIX [Concomitant]
     Indication: CONGESTIVE CARDIOMYOPATHY
     Dosage: DAILY DOSE:40MG
     Route: 048
  8. ALDACTONE [Concomitant]
     Indication: CONGESTIVE CARDIOMYOPATHY
     Dosage: DAILY DOSE:25MG
     Route: 048
  9. FAMOTIDINE [Concomitant]
     Indication: PROPHYLAXIS AGAINST GASTROINTESTINAL ULCER
     Dosage: DAILY DOSE:40MG
     Route: 048
  10. FERROUS SULFATE TAB [Concomitant]
     Indication: IRON DEFICIENCY ANAEMIA
     Dosage: DAILY DOSE:100MG
     Route: 048
  11. DOGMATYL [Concomitant]
     Indication: GASTRITIS PROPHYLAXIS
     Dosage: DAILY DOSE:150MG
     Route: 048
  12. AMOBAN [Concomitant]
     Indication: INSOMNIA
     Route: 048
  13. MUCOSTA [Concomitant]
     Indication: GASTRITIS PROPHYLAXIS
     Dosage: DAILY DOSE:300MG
     Route: 048
  14. ADONA [Concomitant]
     Dosage: DAILY DOSE:30MG
     Route: 048
  15. INSULIN HUMAN [Concomitant]
     Indication: DIABETES MELLITUS
     Route: 058
  16. GLYSENNID [Concomitant]
     Indication: CONSTIPATION
     Route: 048
     Dates: start: 20050519, end: 20050519
  17. MAGNESIUM OXIDE [Concomitant]
     Indication: CONSTIPATION
     Dosage: DAILY DOSE:1GRAM
     Route: 048
     Dates: start: 20050519, end: 20050525
  18. HUMULIN R [Concomitant]
     Indication: DIABETES MELLITUS
     Dosage: TEXT:18 DF
     Route: 042

REACTIONS (3)
  - DIARRHOEA [None]
  - HYPERKALAEMIA [None]
  - WHITE BLOOD CELL COUNT DECREASED [None]
